FAERS Safety Report 4909288-1 (Version None)
Quarter: 2006Q1

REPORT INFORMATION
  Report Type: 
  Country: None (occurrence: None)
  Receive Date: 20060208
  Receipt Date: 20060126
  Transmission Date: 20060701
  Serious: Yes (Other)
  Sender: FDA-Public Use
  Company Number: 2006014593

PATIENT
  Age: 59 Year
  Sex: Female

DRUGS (3)
  1. NEURONTIN [Suspect]
     Indication: PARAESTHESIA
     Dosage: ORAL
     Route: 048
     Dates: start: 20001201, end: 20040101
  2. PRILOSEC [Concomitant]
  3. SYNTHROID [Concomitant]

REACTIONS (4)
  - BLOOD CHOLESTEROL INCREASED [None]
  - DEPRESSION [None]
  - DRUG INEFFECTIVE [None]
  - FLUID RETENTION [None]
